FAERS Safety Report 9620326 (Version 1)
Quarter: 2013Q4

REPORT INFORMATION
  Report Type: Spontaneous
  Country: US (occurrence: US)
  Receive Date: 20131014
  Receipt Date: 20131014
  Transmission Date: 20140711
  Serious: No
  Sender: FDA-Public Use
  Company Number: US-ALLERGAN-1216869US

PATIENT
  Sex: Female

DRUGS (2)
  1. ALPHAGAN P [Suspect]
     Indication: ABNORMAL SENSATION IN EYE
     Dosage: UNK
     Dates: start: 201209, end: 201211
  2. RESTASIS [Concomitant]
     Indication: DRY EYE

REACTIONS (1)
  - Drug ineffective [Unknown]
